FAERS Safety Report 6256413-9 (Version None)
Quarter: 2009Q2

REPORT INFORMATION
  Report Type: 
  Country: None (occurrence: None)
  Receive Date: 20090630
  Receipt Date: 20090630
  Transmission Date: 20091009
  Serious: Yes (Other)
  Sender: FDA-Public Use
  Company Number: None

PATIENT
  Age: 43 Year
  Sex: Female
  Weight: 90.7194 kg

DRUGS (1)
  1. LUPRON DEPOT [Suspect]
     Indication: OVARIAN CYST
     Dosage: 3.75 1/MONTH IM
     Route: 030
     Dates: start: 20030116, end: 20030220

REACTIONS (7)
  - BLOOD URINE PRESENT [None]
  - HYPERGAMMAGLOBULINAEMIA BENIGN MONOCLONAL [None]
  - NEUROPATHY PERIPHERAL [None]
  - OSTEOARTHRITIS [None]
  - OSTEOPOROSIS [None]
  - SCLERODERMA [None]
  - VITAMIN D DEFICIENCY [None]
